FAERS Safety Report 8523861 (Version 6)
Quarter: 2013Q1

REPORT INFORMATION
  Report Type: Report from Study
  Country: JP (occurrence: JP)
  Receive Date: 20120420
  Receipt Date: 20130128
  Transmission Date: 20140127
  Serious: Yes (Hospitalization, Other)
  Sender: FDA-Public Use
  Company Number: JP-VERTEX PHARMACEUTICALS INC.-AE-2012-005300

PATIENT
  Age: 66 Year
  Sex: Male

DRUGS (34)
  1. VX-950 (TELAPREVIR) [Suspect]
     Indication: CHRONIC HEPATITIS C
     Dosage: 2250 MG, QD
     Route: 048
     Dates: start: 20120215, end: 20120221
  2. VX-950 (TELAPREVIR) [Suspect]
     Dosage: 1500 MG, QD
     Route: 048
     Dates: start: 20120222, end: 20120325
  3. REBETOL [Suspect]
     Indication: CHRONIC HEPATITIS C
     Dosage: 800 MG, QD
     Route: 048
     Dates: start: 20120215, end: 20120221
  4. REBETOL [Suspect]
     Dosage: 400 MG, QD
     Route: 048
     Dates: start: 20120222, end: 20120228
  5. REBETOL [Suspect]
     Dosage: 200 MG, QD
     Route: 048
     Dates: start: 20120229, end: 20120325
  6. PEGINTRON [Suspect]
     Indication: CHRONIC HEPATITIS C
     Dosage: 1.5 ?G/KG, QW
     Route: 058
     Dates: start: 20120215, end: 20120323
  7. DIOVAN [Concomitant]
     Dosage: 80 MG, QD
     Route: 048
     Dates: end: 20120419
  8. DIOVAN [Concomitant]
     Dosage: 80 MG, QD
     Route: 048
     Dates: start: 20120502, end: 20120517
  9. AMLODINE OD [Concomitant]
     Dosage: 2.5 MG, QD
     Route: 048
     Dates: end: 20120419
  10. AMLODINE OD [Concomitant]
     Dosage: 5 MG, QD
     Route: 048
     Dates: start: 20120502, end: 20120517
  11. URSO [Concomitant]
     Dosage: 600 MG, QD
     Route: 048
     Dates: start: 20120209, end: 20120209
  12. URSO [Concomitant]
     Dosage: 600 MG, QD
     Route: 048
     Dates: start: 20120425, end: 20120517
  13. BAYASPIRIN [Concomitant]
     Dosage: 100 MG, QD
     Route: 048
     Dates: start: 20120209, end: 20120419
  14. BAYASPIRIN [Concomitant]
     Dosage: 100 MG, QD
     Route: 048
     Dates: start: 20120425, end: 20120517
  15. PLAVIX [Concomitant]
     Dosage: 75 MG, QD
     Route: 048
     Dates: start: 20120209, end: 20120419
  16. PLAVIX [Concomitant]
     Dosage: 75 MG, QD
     Route: 048
     Dates: start: 20120425, end: 20120517
  17. MAINTATE [Concomitant]
     Dosage: 5 MG, QD
     Route: 048
     Dates: start: 20120209, end: 20120419
  18. MAINTATE [Concomitant]
     Dosage: 5 MG, QD
     Route: 048
     Dates: start: 20120425, end: 20120517
  19. EXFORGE [Concomitant]
     Dosage: 1 DF, QD
     Route: 048
     Dates: start: 20120209, end: 20120222
  20. EXFORGE [Concomitant]
     Dosage: 1 DF, QD
     Route: 048
     Dates: start: 20120425, end: 20120515
  21. GASTER D [Concomitant]
     Dosage: 20 MG, QD
     Route: 048
     Dates: start: 20120209, end: 20120419
  22. GASTER D [Concomitant]
     Dosage: 20 MG, QD
     Route: 048
     Dates: start: 20120425, end: 20120517
  23. GASMOTIN [Concomitant]
     Dosage: 15 MG, QD
     Route: 048
     Dates: start: 20120219, end: 20120419
  24. GASMOTIN [Concomitant]
     Dosage: 15 MG, QD
     Route: 048
     Dates: start: 20120425, end: 20120517
  25. BIO-THREE [Concomitant]
     Dosage: 9 DF, QD
     Route: 048
     Dates: start: 20120210, end: 20120211
  26. PEGASYS [Concomitant]
     Dosage: UNK
     Route: 058
     Dates: start: 20120215, end: 20120215
  27. DOGMATYL [Concomitant]
     Dosage: 150 MG, QD
     Route: 048
     Dates: start: 20120310, end: 20120328
  28. ZADITEN [Concomitant]
     Dosage: UNK
     Route: 031
     Dates: start: 20120314, end: 20120320
  29. HYALEIN [Concomitant]
     Dosage: UNK
     Route: 031
     Dates: start: 20120314, end: 20120320
  30. ADOFEED [Concomitant]
     Dosage: UNK
     Route: 061
     Dates: start: 20120316, end: 20120325
  31. LOXONIN [Concomitant]
     Dosage: UNK
     Route: 061
     Dates: start: 20120322, end: 20120328
  32. REFLEX [Concomitant]
     Dosage: 15 MG, QD
     Route: 048
     Dates: start: 20120323, end: 20120328
  33. ISOTONIC SODIUM CHLORIDE SOLUTION [Concomitant]
     Route: 042
  34. MEDICON [Concomitant]
     Dosage: 45 MG, QD
     Route: 048
     Dates: start: 20120417, end: 20120419

REACTIONS (4)
  - Renal disorder [Recovered/Resolved]
  - Depression [Recovered/Resolved]
  - Anaemia [Recovered/Resolved]
  - Hyperuricaemia [Recovered/Resolved]
